FAERS Safety Report 4865734-3 (Version None)
Quarter: 2005Q4

REPORT INFORMATION
  Report Type: 
  Country: None (occurrence: None)
  Receive Date: 20051223
  Receipt Date: 20051115
  Transmission Date: 20060501
  Serious: Yes (Congenital Anomaly, Other)
  Sender: FDA-Public Use
  Company Number: PHMT2005CA00610

PATIENT
  Sex: Male

DRUGS (1)
  1. LETROZOLE [Suspect]
     Route: 064

REACTIONS (3)
  - AORTIC VALVE STENOSIS [None]
  - DRUG EXPOSURE DURING PREGNANCY [None]
  - HEPATIC NEOPLASM MALIGNANT [None]
